FAERS Safety Report 25226738 (Version 1)
Quarter: 2025Q2

REPORT INFORMATION
  Report Type: Spontaneous
  Country: US (occurrence: US)
  Receive Date: 20250422
  Receipt Date: 20250422
  Transmission Date: 20250716
  Serious: No
  Sender: Haleon PLC
  Company Number: US-HALEON-2239085

PATIENT
  Age: 68 Year
  Sex: Female

DRUGS (1)
  1. NICOTINE TRANSDERMAL SYSTEM [Suspect]
     Active Substance: NICOTINE
     Indication: Smoking cessation therapy

REACTIONS (5)
  - Application site pain [Recovered/Resolved]
  - Application site pruritus [Unknown]
  - Application site erythema [Unknown]
  - Application site swelling [Unknown]
  - Application site irritation [Recovered/Resolved]
